FAERS Safety Report 15879799 (Version 1)
Quarter: 2019Q1

REPORT INFORMATION
  Report Type: Spontaneous
  Country: US (occurrence: US)
  Receive Date: 20190103
  Receipt Date: 20190103
  Transmission Date: 20190417
  Serious: Yes (Hospitalization)
  Sender: FDA-Public Use
  Company Number: None

PATIENT
  Age: 73 Year
  Sex: Female

DRUGS (1)
  1. ADEMPAS [Suspect]
     Active Substance: RIOCIGUAT
     Indication: PULMONARY HYPERTENSION
     Dosage: ?          OTHER DOSE:1.5MG;?
     Route: 048
     Dates: start: 20181208

REACTIONS (3)
  - Hydronephrosis [None]
  - Urinary bladder haemorrhage [None]
  - Urinary tract infection [None]

NARRATIVE: CASE EVENT DATE: 20181231
